FAERS Safety Report 4657546-0 (Version None)
Quarter: 2005Q2

REPORT INFORMATION
  Report Type: 
  Country: None (occurrence: None)
  Receive Date: 20050405
  Receipt Date: 20041111
  Transmission Date: 20051028
  Serious: Yes (Other)
  Sender: FDA-Public Use
  Company Number: 2004092319

PATIENT
  Age: 36 Year
  Sex: Female

DRUGS (2)
  1. GEODON [Suspect]
     Indication: ILL-DEFINED DISORDER
  2. LORAZEPAM [Suspect]
     Indication: ILL-DEFINED DISORDER

REACTIONS (4)
  - CONFUSIONAL STATE [None]
  - CONVULSION [None]
  - DRUG INTERACTION [None]
  - SOMNOLENCE [None]
